FAERS Safety Report 5511790-9 (Version None)
Quarter: 2007Q4

REPORT INFORMATION
  Report Type: 
  Country: None (occurrence: None)
  Receive Date: 20071109
  Receipt Date: 20071029
  Transmission Date: 20080405
  Serious: Yes (Other)
  Sender: FDA-Public Use
  Company Number: JP-PFIZER INC-2007088086

PATIENT
  Age: 40 Year
  Sex: Female

DRUGS (6)
  1. ZITHROMAX [Suspect]
     Indication: PHARYNGITIS
     Dosage: DAILY DOSE:500MG
     Route: 048
     Dates: start: 20071009, end: 20071011
  2. PRANLUKAST HYDRATE [Concomitant]
     Route: 048
     Dates: start: 20071009, end: 20071015
  3. HERBAL PREPARATION [Concomitant]
     Route: 048
     Dates: start: 20071009, end: 20071015
  4. SERTRALINE HYDROCHLORIDE [Concomitant]
     Route: 048
  5. ETIZOLAM [Concomitant]
     Route: 048
  6. FEXOFENADINE HYDROCHLORIDE [Concomitant]
     Route: 048
     Dates: start: 20071015

REACTIONS (4)
  - AMENORRHOEA [None]
  - HEADACHE [None]
  - METRORRHAGIA [None]
  - URTICARIA [None]
